FAERS Safety Report 14703390 (Version 3)
Quarter: 2018Q2

REPORT INFORMATION
  Report Type: Report from Study
  Country: None (occurrence: CA)
  Receive Date: 20180402
  Receipt Date: 20180427
  Transmission Date: 20180711
  Serious: Yes (Hospitalization)
  Sender: FDA-Public Use
  Company Number: CA-ABBVIE-18K-028-2307215-00

PATIENT
  Age: 27 Year
  Sex: Male

DRUGS (1)
  1. DUODOPA [Suspect]
     Active Substance: CARBIDOPA\LEVODOPA
     Indication: PARKINSON^S DISEASE
     Dosage: MORNING BOLUS: 7.5 (+3) ML??CONTINUOUS DOSE: 5ML/H
     Route: 050
     Dates: start: 20170516

REACTIONS (3)
  - Anxiety [Unknown]
  - Seizure [Recovered/Resolved]
  - Stress [Unknown]

NARRATIVE: CASE EVENT DATE: 20180329
